FAERS Safety Report 7133408-4 (Version None)
Quarter: 2010Q4

REPORT INFORMATION
  Report Type: 
  Country: None (occurrence: None)
  Receive Date: 20101202
  Receipt Date: 20101124
  Transmission Date: 20110411
  Serious: Yes (Hospitalization, Other)
  Sender: FDA-Public Use
  Company Number: JP-PFIZER INC-2010122530

PATIENT
  Age: 73 Year
  Sex: Female
  Weight: 50 kg

DRUGS (22)
  1. LYRICA [Suspect]
     Indication: POST HERPETIC NEURALGIA
     Dosage: 25 MG/DAY
     Route: 048
     Dates: start: 20100919, end: 20100921
  2. LYRICA [Suspect]
     Dosage: 50 MG/DAY
     Route: 048
     Dates: start: 20100922, end: 20100930
  3. TAKEPRON [Concomitant]
     Indication: REFLUX OESOPHAGITIS
     Dosage: 15 MG, 1X/DAY
     Route: 048
     Dates: start: 20100301
  4. RISUMIC [Concomitant]
     Indication: BLOOD PRESSURE DECREASED
     Dosage: 10 MG, AS NEEDED
     Route: 048
     Dates: start: 20100301
  5. NESPO ^AMGEN^ [Concomitant]
     Indication: ANAEMIA
     Dosage: 120 UG, AS NEEDED
     Route: 042
     Dates: start: 20100301
  6. ROCALTROL [Concomitant]
     Indication: HYPOPARATHYROIDISM
     Dosage: 1.5 UG, AS NEEDED
     Route: 042
     Dates: start: 20100301
  7. DOPAMINE HCL [Concomitant]
     Indication: BLOOD PRESSURE INCREASED
  8. LOXONIN [Concomitant]
     Indication: CANCER PAIN
     Dosage: 60 MG, 1X/DAY
     Route: 048
     Dates: start: 20100301
  9. FENTANYL [Concomitant]
     Indication: CANCER PAIN
     Dosage: 2.1 MG, DAY
     Route: 062
     Dates: start: 20100908
  10. ARASENA A [Concomitant]
     Indication: HERPES ZOSTER
     Dosage: UNK
     Route: 062
     Dates: start: 20100823, end: 20100923
  11. PREDNISOLONE [Concomitant]
     Route: 048
  12. GABAPEN [Concomitant]
     Route: 048
  13. ANPEC [Concomitant]
  14. NAUZELIN [Concomitant]
  15. FENTANYL CITRATE [Concomitant]
  16. LIDOCAINE [Concomitant]
  17. INDOMETHACIN SODIUM [Concomitant]
  18. LEPETAN [Concomitant]
  19. DEPAS [Concomitant]
     Route: 048
  20. D-SORBITOL/GLYCERIN/NA CITRATE [Concomitant]
  21. ALESION [Concomitant]
     Route: 048
  22. DARBEPOETIN ALFA [Concomitant]

REACTIONS (6)
  - ASCITES [None]
  - BLOOD GLUCOSE INCREASED [None]
  - BLOOD PRESSURE DECREASED [None]
  - BLOOD PRESSURE INCREASED [None]
  - LOSS OF CONSCIOUSNESS [None]
  - WEIGHT INCREASED [None]
